FAERS Safety Report 22001872 (Version 4)
Quarter: 2023Q2

REPORT INFORMATION
  Report Type: Spontaneous
  Country: US (occurrence: US)
  Receive Date: 20230216
  Receipt Date: 20230503
  Transmission Date: 20230721
  Serious: No
  Sender: FDA-Public Use
  Company Number: US-IDORSIA-003441-2023-US

PATIENT
  Age: 34 Year
  Sex: Female

DRUGS (5)
  1. QUVIVIQ [Suspect]
     Active Substance: DARIDOREXANT
     Indication: Persistent depressive disorder
     Dosage: 50 MG, QD
     Route: 065
     Dates: start: 20230112
  2. GABAPENTIN [Concomitant]
     Active Substance: GABAPENTIN
     Indication: Persistent depressive disorder
     Dosage: 400 MG, QD
     Route: 048
     Dates: start: 20160303
  3. GABAPENTIN [Concomitant]
     Active Substance: GABAPENTIN
     Indication: Insomnia
  4. LAMICTAL [Concomitant]
     Active Substance: LAMOTRIGINE
     Indication: Persistent depressive disorder
     Dosage: 300 MG, QD
     Dates: start: 20160128
  5. LAMICTAL [Concomitant]
     Active Substance: LAMOTRIGINE
     Indication: Mood swings

REACTIONS (2)
  - Nightmare [Recovering/Resolving]
  - Off label use [Not Recovered/Not Resolved]

NARRATIVE: CASE EVENT DATE: 20230201
